FAERS Safety Report 9470677 (Version 1)
Quarter: 2013Q3

REPORT INFORMATION
  Report Type: Spontaneous
  Country: US (occurrence: US)
  Receive Date: 20130822
  Receipt Date: 20130822
  Transmission Date: 20140515
  Serious: No
  Sender: FDA-Public Use
  Company Number: US-PFIZER INC-2013242616

PATIENT
  Sex: Male

DRUGS (2)
  1. ADVIL [Suspect]
     Indication: BACK PAIN
     Dosage: UNK
  2. DARVON [Suspect]
     Dosage: UNK

REACTIONS (4)
  - Hypersensitivity [Unknown]
  - Anxiety [Unknown]
  - Insomnia [Unknown]
  - Abnormal behaviour [Unknown]
